FAERS Safety Report 14366605 (Version 1)
Quarter: 2018Q1

REPORT INFORMATION
  Report Type: Spontaneous
  Country: US (occurrence: US)
  Receive Date: 20180109
  Receipt Date: 20180109
  Transmission Date: 20180509
  Serious: No
  Sender: FDA-Public Use
  Company Number: US-009507513-1712USA010137

PATIENT
  Sex: Female
  Weight: 53.06 kg

DRUGS (1)
  1. NEXPLANON [Suspect]
     Active Substance: ETONOGESTREL
     Indication: CONTRACEPTION
     Dosage: LEFT ARM- IMPLANT, EVERY THREE YEARS
     Route: 059
     Dates: start: 20150914

REACTIONS (2)
  - Breast pain [Unknown]
  - Back pain [Unknown]

NARRATIVE: CASE EVENT DATE: 2017
